FAERS Safety Report 9656512 (Version 1)
Quarter: 2013Q4

REPORT INFORMATION
  Report Type: Spontaneous
  Country: US (occurrence: US)
  Receive Date: 20131030
  Receipt Date: 20131030
  Transmission Date: 20140711
  Serious: Yes (Death)
  Sender: FDA-Public Use
  Company Number: US-BAYER-2013-129278

PATIENT
  Age: 95 Year
  Sex: Female
  Weight: 72.11 kg

DRUGS (1)
  1. ALKA-SELTZER ORIGINAL [Suspect]
     Indication: DYSPEPSIA
     Dosage: 6 DF, DAILY
     Route: 048
     Dates: start: 1951, end: 20101203

REACTIONS (2)
  - Death [Fatal]
  - Incorrect drug administration duration [None]
